FAERS Safety Report 23383511 (Version 2)
Quarter: 2024Q1

REPORT INFORMATION
  Report Type: Spontaneous
  Country: US (occurrence: US)
  Receive Date: 20240109
  Receipt Date: 20240219
  Transmission Date: 20240410
  Serious: No
  Sender: FDA-Public Use
  Company Number: US-SA-SAC20240102001116

PATIENT
  Age: 57 Year
  Sex: Male

DRUGS (2)
  1. DUPIXENT [Suspect]
     Active Substance: DUPILUMAB
     Indication: Eczema
     Dosage: 600 MG, 1X
     Route: 058
     Dates: start: 20231223, end: 20231223
  2. DUPIXENT [Suspect]
     Active Substance: DUPILUMAB
     Dosage: 300 MG, QOW
     Route: 058

REACTIONS (10)
  - Eczema [Unknown]
  - Skin burning sensation [Unknown]
  - Rash [Unknown]
  - Blister [Unknown]
  - Pruritus [Unknown]
  - COVID-19 [Unknown]
  - Headache [Unknown]
  - Nasal congestion [Unknown]
  - Asthenia [Unknown]
  - Skin ulcer [Unknown]

NARRATIVE: CASE EVENT DATE: 20231226
